FAERS Safety Report 6731099-5 (Version None)
Quarter: 2010Q2

REPORT INFORMATION
  Report Type: 
  Country: None (occurrence: None)
  Receive Date: 20100518
  Receipt Date: 20100512
  Transmission Date: 20101027
  Serious: Yes (Death, Hospitalization, Other)
  Sender: FDA-Public Use
  Company Number: US-ELI_LILLY_AND_COMPANY-US201005003770

PATIENT
  Age: 79 Year
  Sex: Female

DRUGS (1)
  1. GEMCITABINE HCL [Suspect]
     Indication: ADENOCARCINOMA PANCREAS

REACTIONS (4)
  - ATRIAL FIBRILLATION [None]
  - IMMUNOSUPPRESSION [None]
  - MYCOBACTERIUM AVIUM COMPLEX INFECTION [None]
  - RESPIRATORY FAILURE [None]
